FAERS Safety Report 19755850 (Version 1)
Quarter: 2021Q3

REPORT INFORMATION
  Report Type: Spontaneous
  Country: CN (occurrence: CN)
  Receive Date: 20210827
  Receipt Date: 20210827
  Transmission Date: 20211014
  Serious: Yes (Hospitalization)
  Sender: FDA-Public Use
  Company Number: CN-PFIZER INC-202101083731

PATIENT
  Age: 53 Year
  Sex: Female
  Weight: 35 kg

DRUGS (1)
  1. FLUCONAZOLE. [Suspect]
     Active Substance: FLUCONAZOLE
     Indication: CRYPTOCOCCOSIS
     Dosage: 0.8 G, 1X/DAY
     Route: 041
     Dates: start: 20210730, end: 20210809

REACTIONS (3)
  - Platelet count decreased [Recovering/Resolving]
  - Condition aggravated [Unknown]
  - Enteritis [Unknown]

NARRATIVE: CASE EVENT DATE: 20210804
